FAERS Safety Report 24312797 (Version 1)
Quarter: 2024Q3

REPORT INFORMATION
  Report Type: Spontaneous
  Country: US (occurrence: US)
  Receive Date: 20240912
  Receipt Date: 20240912
  Transmission Date: 20241016
  Serious: No
  Sender: SANDOZ
  Company Number: US-SANDOZ-SDZ2024US079207

PATIENT
  Age: 73 Year
  Sex: Male

DRUGS (3)
  1. AZITHROMYCIN [Suspect]
     Active Substance: AZITHROMYCIN
     Indication: Mycobacterium avium complex infection
     Route: 065
  2. ETHAMBUTOL [Concomitant]
     Active Substance: ETHAMBUTOL HYDROCHLORIDE
     Indication: Mycobacterium avium complex infection
     Dosage: 400 MG, 3 TIMES WEEKLY
     Route: 065
  3. RIFABUTIN [Concomitant]
     Active Substance: RIFABUTIN
     Indication: Mycobacterium avium complex infection
     Dosage: 150 MG 2 TAB  3 TIMES WEEKLY
     Route: 048

REACTIONS (1)
  - Hypoacusis [Unknown]
